FAERS Safety Report 18640016 (Version 2)
Quarter: 2021Q4

REPORT INFORMATION
  Report Type: Spontaneous
  Country: US (occurrence: US)
  Receive Date: 20201220
  Receipt Date: 20211217
  Transmission Date: 20220303
  Serious: No
  Sender: FDA-Public Use
  Company Number: US-PACIRA-202000405

PATIENT
  Age: 52 Year
  Sex: Male
  Weight: 91 kg

DRUGS (4)
  1. EXPAREL [Suspect]
     Active Substance: BUPIVACAINE
     Dosage: 1 DOSE (133 MG/ML)
     Route: 030
     Dates: start: 20200911, end: 20200911
  2. BUPIVACAINE [Suspect]
     Active Substance: BUPIVACAINE
     Dosage: NOT PROVIDED
     Route: 030
     Dates: start: 20200911, end: 20200911
  3. DEPO-MEDROL [Concomitant]
     Active Substance: METHYLPREDNISOLONE ACETATE
     Dosage: 40 MG (1 DOSE)
     Route: 030
     Dates: start: 20200911, end: 20200911
  4. LIDOCAINE [Concomitant]
     Active Substance: LIDOCAINE
     Dosage: 10 ML
     Route: 065
     Dates: start: 20200911, end: 20200911

REACTIONS (2)
  - Incorrect route of product administration [Unknown]
  - Muscular weakness [Recovered/Resolved]

NARRATIVE: CASE EVENT DATE: 20200911
